FAERS Safety Report 8923686 (Version 1)
Quarter: 2012Q4

REPORT INFORMATION
  Report Type: Spontaneous
  Country: US (occurrence: None)
  Receive Date: 20121126
  Receipt Date: 20121126
  Transmission Date: 20130627
  Serious: Yes (Other)
  Sender: FDA-Public Use
  Company Number: None

PATIENT
  Age: 53 Year
  Sex: Male
  Weight: 102.06 kg

DRUGS (1)
  1. BUPIVACAINE [Suspect]
     Dates: start: 20120413, end: 20120413

REACTIONS (10)
  - Swelling face [None]
  - Skin discolouration [None]
  - Nasal discharge discolouration [None]
  - Nasal congestion [None]
  - Dizziness [None]
  - Asthenia [None]
  - Dysgeusia [None]
  - Fatigue [None]
  - Haemorrhage [None]
  - Anaesthetic complication [None]
